FAERS Safety Report 22195008 (Version 1)
Quarter: 2023Q2

REPORT INFORMATION
  Report Type: Other
  Country: US (occurrence: None)
  Receive Date: 20230411
  Receipt Date: 20230411
  Transmission Date: 20230721
  Serious: No
  Sender: FDA-Public Use
  Company Number: US-ROCHE-3322837

PATIENT
  Age: 48 Year
  Sex: Female
  Weight: 49.940 kg

DRUGS (8)
  1. OCREVUS [Suspect]
     Active Substance: OCRELIZUMAB
     Indication: Relapsing-remitting multiple sclerosis
     Dosage: IV INFUSION ;ONGOING: YES
     Route: 042
     Dates: start: 2021
  2. EFFEXOR [Concomitant]
     Active Substance: VENLAFAXINE HYDROCHLORIDE
  3. MODAFINIL [Concomitant]
     Active Substance: MODAFINIL
  4. TOPAMAX [Concomitant]
     Active Substance: TOPIRAMATE
  5. PHENERGAN [Concomitant]
     Active Substance: PROMETHAZINE HYDROCHLORIDE
  6. MAXALT [Concomitant]
     Active Substance: RIZATRIPTAN BENZOATE
  7. GABAPENTIN [Concomitant]
     Active Substance: GABAPENTIN
  8. VALIUM [Concomitant]
     Active Substance: DIAZEPAM

REACTIONS (12)
  - Fatigue [Not Recovered/Not Resolved]
  - Asthenia [Not Recovered/Not Resolved]
  - COVID-19 [Recovered/Resolved]
  - Menopause [Recovered/Resolved]
  - Blood phosphorus decreased [Not Recovered/Not Resolved]
  - Hyperparathyroidism [Unknown]
  - Blood calcium abnormal [Unknown]
  - Blood urine present [Unknown]
  - Blood parathyroid hormone increased [Unknown]
  - Hypoaesthesia [Not Recovered/Not Resolved]
  - Paraesthesia [Not Recovered/Not Resolved]
  - Muscle spasticity [Not Recovered/Not Resolved]

NARRATIVE: CASE EVENT DATE: 20220101
